FAERS Safety Report 5427897-0 (Version None)
Quarter: 2007Q3

REPORT INFORMATION
  Report Type: 
  Country: None (occurrence: None)
  Receive Date: 20070828
  Receipt Date: 20070816
  Transmission Date: 20080115
  Serious: Yes (Other)
  Sender: FDA-Public Use
  Company Number: GB-PFIZER INC-2007068535

PATIENT
  Sex: Male

DRUGS (2)
  1. CHAMPIX [Suspect]
     Route: 048
  2. CARBAMAZEPINE [Concomitant]

REACTIONS (3)
  - AGGRESSION [None]
  - FACIAL PARESIS [None]
  - STROKE IN EVOLUTION [None]
